FAERS Safety Report 6326341-9 (Version None)
Quarter: 2009Q3

REPORT INFORMATION
  Report Type: 
  Country: None (occurrence: None)
  Receive Date: 20090821
  Receipt Date: 20090810
  Transmission Date: 20100115
  Serious: Yes (Hospitalization)
  Sender: FDA-Public Use
  Company Number: SPV1-2009-01634

PATIENT
  Age: 10 Year
  Sex: Male

DRUGS (1)
  1. ELAPRASE [Suspect]
     Indication: MUCOPOLYSACCHARIDOSIS II
     Dosage: 1XWEEK, IV DRIP
     Route: 041
     Dates: start: 20070123

REACTIONS (4)
  - DYSPNOEA [None]
  - LUNG DISORDER [None]
  - POST PROCEDURAL COMPLICATION [None]
  - TONSILLECTOMY [None]
